FAERS Safety Report 19424072 (Version 2)
Quarter: 2021Q3

REPORT INFORMATION
  Report Type: Spontaneous
  Country: IT (occurrence: IT)
  Receive Date: 20210616
  Receipt Date: 20210705
  Transmission Date: 20211014
  Serious: Yes (Other)
  Sender: FDA-Public Use
  Company Number: IT-PFIZER INC-2021663540

PATIENT
  Age: 62 Year
  Sex: Male

DRUGS (2)
  1. CYTARABINE. [Suspect]
     Active Substance: CYTARABINE
     Indication: ACUTE MYELOID LEUKAEMIA
  2. MYLOTARG [Suspect]
     Active Substance: GEMTUZUMAB OZOGAMICIN
     Dosage: UNK

REACTIONS (17)
  - Pyrexia [Unknown]
  - Dizziness [Unknown]
  - Chest pain [Unknown]
  - Cough [Unknown]
  - Hypocapnia [Unknown]
  - Chills [Unknown]
  - Deep vein thrombosis [Unknown]
  - Chills [Unknown]
  - Bacteraemia [Unknown]
  - Bradycardia [Unknown]
  - Syncope [Unknown]
  - Feeling cold [Unknown]
  - C-reactive protein increased [Unknown]
  - Procalcitonin increased [Unknown]
  - Cardiac failure [Unknown]
  - Feeling cold [Unknown]
  - Pyrexia [Unknown]

NARRATIVE: CASE EVENT DATE: 20201006
